FAERS Safety Report 4844052-3 (Version None)
Quarter: 2005Q4

REPORT INFORMATION
  Report Type: 
  Country: None (occurrence: None)
  Receive Date: 20051202
  Receipt Date: 20050714
  Transmission Date: 20060501
  Serious: Yes (Hospitalization)
  Sender: FDA-Public Use
  Company Number: BE-ROCHE-410867

PATIENT
  Sex: Female

DRUGS (1)
  1. FUZEON [Suspect]
     Route: 065

REACTIONS (5)
  - HENOCH-SCHONLEIN PURPURA [None]
  - INJECTION SITE REACTION [None]
  - LYMPHOCYTE STIMULATION TEST POSITIVE [None]
  - URTICARIA [None]
  - VASCULITIS [None]
